FAERS Safety Report 6814037-6 (Version None)
Quarter: 2010Q3

REPORT INFORMATION
  Report Type: 
  Country: None (occurrence: None)
  Receive Date: 20100702
  Receipt Date: 20100622
  Transmission Date: 20110219
  Serious: Yes (Other)
  Sender: FDA-Public Use
  Company Number: US-ABBOTT-10P-163-0653258-00

PATIENT
  Sex: Male
  Weight: 79.45 kg

DRUGS (3)
  1. LUPRON DEPOT [Suspect]
     Indication: PROSTATE CANCER
     Route: 030
     Dates: start: 19980101, end: 20090601
  2. DOXACIL [Concomitant]
     Indication: ROSACEA
  3. VITAMINS [Concomitant]
     Indication: VITAMIN SUPPLEMENTATION

REACTIONS (11)
  - BLADDER DILATATION [None]
  - DECREASED APPETITE [None]
  - DYSURIA [None]
  - HOT FLUSH [None]
  - POLLAKIURIA [None]
  - PROSTATIC HAEMORRHAGE [None]
  - PROSTATIC SPECIFIC ANTIGEN INCREASED [None]
  - THROMBOSIS [None]
  - URINARY TRACT INFECTION [None]
  - URINARY TRACT OBSTRUCTION [None]
  - WEIGHT DECREASED [None]
